FAERS Safety Report 20164554 (Version 1)
Quarter: 2021Q4

REPORT INFORMATION
  Report Type: Spontaneous
  Country: ES (occurrence: ES)
  Receive Date: 20211209
  Receipt Date: 20211209
  Transmission Date: 20220303
  Serious: No
  Sender: FDA-Public Use
  Company Number: ES-LUPIN PHARMACEUTICALS INC.-2021-23992

PATIENT
  Age: 68 Year
  Sex: Female

DRUGS (20)
  1. CELECOXIB [Suspect]
     Active Substance: CELECOXIB
     Indication: Headache
     Dosage: UNK
     Route: 065
  2. DULOXETINE [Suspect]
     Active Substance: DULOXETINE
     Indication: Headache
     Dosage: UNK
     Route: 065
  3. LAMOTRIGINE [Suspect]
     Active Substance: LAMOTRIGINE
     Indication: Headache
     Dosage: UNK
     Route: 065
  4. TOPIRAMATE [Suspect]
     Active Substance: TOPIRAMATE
     Indication: Headache
     Dosage: UNK
     Route: 065
  5. PREGABALIN [Suspect]
     Active Substance: PREGABALIN
     Indication: Headache
     Dosage: UNK
     Route: 065
  6. MIRTAZAPINE [Suspect]
     Active Substance: MIRTAZAPINE
     Dosage: UNK
     Route: 065
  7. SUMATRIPTAN [Suspect]
     Active Substance: SUMATRIPTAN
     Indication: Headache
     Dosage: UNK
     Route: 065
  8. AMITRIPTYLINE [Suspect]
     Active Substance: AMITRIPTYLINE
     Indication: Headache
     Dosage: UNK
     Route: 065
  9. CARBAMAZEPINE [Suspect]
     Active Substance: CARBAMAZEPINE
     Indication: Headache
     Dosage: UNK
     Route: 065
  10. NEBIVOLOL [Suspect]
     Active Substance: NEBIVOLOL
     Indication: Headache
     Dosage: UNK
     Route: 065
  11. PREDNISONE [Suspect]
     Active Substance: PREDNISONE
     Indication: Headache
     Dosage: UNK
     Route: 065
  12. LITHIUM [Suspect]
     Active Substance: LITHIUM
     Indication: Headache
     Dosage: UNK
     Route: 065
  13. BOTULINUM TOXIN TYPE A [Suspect]
     Active Substance: BOTULINUM TOXIN TYPE A
     Indication: Headache
     Dosage: UNK
     Route: 065
  14. GALCANEZUMAB [Concomitant]
     Active Substance: GALCANEZUMAB
     Indication: Headache
     Dosage: 240 MILLIGRAM
     Route: 065
  15. GALCANEZUMAB [Concomitant]
     Active Substance: GALCANEZUMAB
     Dosage: 120 MILLIGRAM
     Route: 065
  16. NAPROXEN [Concomitant]
     Active Substance: NAPROXEN
     Indication: Headache
     Dosage: UNK
     Route: 065
  17. OMEPRAZOLE [Concomitant]
     Active Substance: OMEPRAZOLE
     Indication: Headache
     Dosage: UNK
     Route: 065
  18. OMEPRAZOLE [Concomitant]
     Active Substance: OMEPRAZOLE
     Dosage: 25 MILLIGRAM; INTERVAL: THRICE A DAY
     Route: 065
  19. INDOMETHACIN [Concomitant]
     Active Substance: INDOMETHACIN
     Indication: Headache
     Dosage: UNK
     Route: 065
     Dates: start: 202110
  20. INDOMETHACIN [Concomitant]
     Active Substance: INDOMETHACIN
     Dosage: INTERVAL : THRICE A DAY
     Route: 065

REACTIONS (2)
  - Drug ineffective for unapproved indication [Unknown]
  - Off label use [Unknown]
